FAERS Safety Report 4421311-X (Version None)
Quarter: 2004Q3

REPORT INFORMATION
  Report Type: 
  Country: None (occurrence: None)
  Receive Date: 20040804
  Receipt Date: 20040726
  Transmission Date: 20050211
  Serious: Yes (Hospitalization)
  Sender: FDA-Public Use
  Company Number: 2004-118778-NL

PATIENT
  Age: 34 Year
  Sex: Female

DRUGS (1)
  1. NUVARING [Suspect]
     Indication: CONTRACEPTION
     Dosage: DF  VAGINAL
     Route: 067
     Dates: start: 20040601

REACTIONS (9)
  - BLOOD CREATININE INCREASED [None]
  - C-REACTIVE PROTEIN INCREASED [None]
  - DYSURIA [None]
  - HAEMOGLOBIN DECREASED [None]
  - IATROGENIC INJURY [None]
  - MEDICATION ERROR [None]
  - POLLAKIURIA [None]
  - URINARY RETENTION [None]
  - URINARY TRACT INFECTION [None]
